FAERS Safety Report 25813215 (Version 1)
Quarter: 2025Q3

REPORT INFORMATION
  Report Type: Spontaneous
  Country: EU (occurrence: EU)
  Receive Date: 20250917
  Receipt Date: 20250917
  Transmission Date: 20251021
  Serious: Yes (Death, Life-Threatening)
  Sender: PFIZER
  Company Number: EU-PFIZER INC-PV202500111809

PATIENT
  Age: 48 Year
  Sex: Female

DRUGS (2)
  1. TUKYSA [Interacting]
     Active Substance: TUCATINIB
     Indication: HER2 positive breast cancer
     Dosage: 300 MG, 2X/DAY, EVERY DAY (1 CYCLE)
  2. TACROLIMUS [Interacting]
     Active Substance: TACROLIMUS
     Indication: Transplant

REACTIONS (1)
  - Drug interaction [Fatal]

NARRATIVE: CASE EVENT DATE: 20250915
